FAERS Safety Report 8005520-9 (Version None)
Quarter: 2011Q4

REPORT INFORMATION
  Report Type: 
  Country: None (occurrence: None)
  Receive Date: 20111223
  Receipt Date: 20111216
  Transmission Date: 20120403
  Serious: Yes (Hospitalization)
  Sender: FDA-Public Use
  Company Number: DK-PFIZER INC-2011306089

PATIENT
  Age: 68 Year
  Sex: Male
  Weight: 82 kg

DRUGS (1)
  1. SUNITINIB MALATE [Suspect]
     Indication: METASTATIC RENAL CELL CARCINOMA
     Dosage: 45 MG, 1X/DAY IN 20 DAYS THEN PAUSE IN 22 DAYS
     Dates: start: 20080626, end: 20080908

REACTIONS (3)
  - VOMITING [None]
  - DEHYDRATION [None]
  - FATIGUE [None]
